FAERS Safety Report 10950834 (Version 1)
Quarter: 2015Q1

REPORT INFORMATION
  Report Type: Spontaneous
  Country: US (occurrence: None)
  Receive Date: 20150226
  Receipt Date: 20150226
  Transmission Date: 20150721
  Serious: Yes (Hospitalization, Other)
  Sender: FDA-Public Use
  Company Number: TPA2010A03870

PATIENT
  Age: 72 Year
  Sex: Female
  Weight: 63.5 kg

DRUGS (5)
  1. TUMS (CALCIUM CACRBONATE) [Concomitant]
  2. METOPROLOL (METOPROLOL) [Concomitant]
     Active Substance: METOPROLOL
  3. NORVASC [Concomitant]
     Active Substance: AMLODIPINE BESYLATE
  4. PREVACID [Suspect]
     Active Substance: LANSOPRAZOLE
     Indication: GASTROOESOPHAGEAL REFLUX DISEASE
     Route: 048
     Dates: start: 20081228, end: 201006
  5. ATIVAN [Concomitant]
     Active Substance: LORAZEPAM

REACTIONS (6)
  - Renal failure [None]
  - Drug ineffective [None]
  - Abdominal pain upper [None]
  - Dysgeusia [None]
  - Cerebrovascular accident [None]
  - Pollakiuria [None]

NARRATIVE: CASE EVENT DATE: 200910
